FAERS Safety Report 18529898 (Version 1)
Quarter: 2020Q4

REPORT INFORMATION
  Report Type: Spontaneous
  Country: CN (occurrence: CN)
  Receive Date: 20201120
  Receipt Date: 20201120
  Transmission Date: 20210114
  Serious: Yes (Other)
  Sender: FDA-Public Use
  Company Number: CN-ASTRAZENECA-2020SF52419

PATIENT
  Age: 26402 Day
  Sex: Male
  Weight: 95 kg

DRUGS (1)
  1. BRILINTA [Suspect]
     Active Substance: TICAGRELOR
     Indication: PLATELET AGGREGATION TEST
     Route: 048
     Dates: start: 20201030, end: 20201106

REACTIONS (2)
  - Chest discomfort [Recovering/Resolving]
  - Dyspnoea [Recovering/Resolving]

NARRATIVE: CASE EVENT DATE: 20201105
